FAERS Safety Report 9461098 (Version 1)
Quarter: 2013Q3

REPORT INFORMATION
  Report Type: Spontaneous
  Country: US (occurrence: US)
  Receive Date: 20130816
  Receipt Date: 20130816
  Transmission Date: 20140515
  Serious: No
  Sender: FDA-Public Use
  Company Number: US-ASTRAZENECA-2013SE59784

PATIENT
  Sex: 0

DRUGS (2)
  1. CRESTOR [Suspect]
     Route: 048
  2. NINE OTHER DRUGS [Concomitant]

REACTIONS (1)
  - Henoch-Schonlein purpura [Unknown]
